FAERS Safety Report 8175805-4 (Version None)
Quarter: 2012Q1

REPORT INFORMATION
  Report Type: 
  Country: None (occurrence: None)
  Receive Date: 20120228
  Receipt Date: 20120217
  Transmission Date: 20120608
  Serious: Yes (Life-Threatening, Hospitalization)
  Sender: FDA-Public Use
  Company Number: A-12-011

PATIENT
  Age: 62 Year
  Sex: Female
  Weight: 62.5964 kg

DRUGS (5)
  1. ALBUTEROL SULFATE [Suspect]
     Indication: BRONCHOSPASM
     Dosage: 054
     Dates: start: 20120201
  2. TRAMADOL HCL [Concomitant]
  3. SPIRIVA [Concomitant]
  4. TOPAMAX [Concomitant]
  5. SYMBICORT [Concomitant]

REACTIONS (2)
  - LOSS OF CONSCIOUSNESS [None]
  - RESPIRATORY ARREST [None]
